FAERS Safety Report 9921158 (Version 1)
Quarter: 2014Q1

REPORT INFORMATION
  Report Type: Spontaneous
  Country: US (occurrence: US)
  Receive Date: 20140225
  Receipt Date: 20140225
  Transmission Date: 20141002
  Serious: No
  Sender: FDA-Public Use
  Company Number: US-009507513-1402USA009416

PATIENT
  Age: 56 Year
  Sex: Female

DRUGS (6)
  1. PEGINTRON [Suspect]
     Indication: HEPATITIS C
     Dosage: REDIPEN, 1 INJECTION WEEKLY
  2. INCIVEK [Concomitant]
     Dosage: UNK
  3. LYRICA [Concomitant]
     Dosage: UNK
  4. OMEPRAZOLE [Concomitant]
     Dosage: UNK
  5. VITAMIN B (UNSPECIFIED) [Concomitant]
     Dosage: UNK
  6. CYANOCOBALAMIN [Concomitant]
     Dosage: UNK

REACTIONS (9)
  - Bone pain [Recovered/Resolved]
  - Haemorrhoids [Recovered/Resolved]
  - Abdominal distension [Recovered/Resolved]
  - Anxiety [Recovered/Resolved]
  - Headache [Recovered/Resolved]
  - Nausea [Recovered/Resolved]
  - Myalgia [Recovered/Resolved]
  - Injection site rash [Recovered/Resolved]
  - Drug dose omission [Unknown]
